FAERS Safety Report 4976644-5 (Version None)
Quarter: 2006Q2

REPORT INFORMATION
  Report Type: 
  Country: None (occurrence: None)
  Receive Date: 20060419
  Receipt Date: 20051205
  Transmission Date: 20061013
  Serious: Yes (Death)
  Sender: FDA-Public Use
  Company Number: US-MERCK-0512USA00834

PATIENT
  Age: 51 Year
  Sex: Male
  Weight: 91 kg

DRUGS (11)
  1. VIOXX [Suspect]
     Indication: RHEUMATOID ARTHRITIS
     Route: 048
     Dates: start: 20010815, end: 20040503
  2. ENBREL [Concomitant]
     Indication: ARTHRITIS
     Route: 048
  3. AZULFIDINE [Concomitant]
     Indication: ARTHRITIS
     Route: 048
  4. FOLIC ACID [Concomitant]
     Indication: HYPOVITAMINOSIS
     Route: 048
     Dates: start: 20010711, end: 20040502
  5. PREDNISONE [Concomitant]
     Indication: RHEUMATOID ARTHRITIS
     Route: 048
     Dates: start: 20010720, end: 20040502
  6. METHOTREXATE [Concomitant]
     Indication: ARTHRITIS
     Route: 065
     Dates: start: 20021125, end: 20040502
  7. ZESTORETIC [Concomitant]
     Indication: HYPERTENSION
     Route: 065
     Dates: start: 20010309, end: 20020827
  8. ASPIRIN [Concomitant]
     Indication: PROPHYLAXIS
     Route: 065
     Dates: start: 20021017, end: 20040502
  9. ACETAMINOPHEN AND CODEINE PHOSPHATE [Concomitant]
     Indication: ARTHRITIS
     Route: 065
     Dates: start: 20020418, end: 20021202
  10. ARAVA [Concomitant]
     Indication: ARTHRITIS
     Route: 065
     Dates: start: 20020515, end: 20040502
  11. LIPITOR [Concomitant]
     Indication: BLOOD CHOLESTEROL INCREASED
     Route: 065
     Dates: start: 20011203, end: 20021119

REACTIONS (4)
  - BLOOD ALKALINE PHOSPHATASE INCREASED [None]
  - DIARRHOEA [None]
  - MYOCARDIAL INFARCTION [None]
  - VOMITING [None]
